FAERS Safety Report 6046261-7 (Version None)
Quarter: 2009Q1

REPORT INFORMATION
  Report Type: 
  Country: None (occurrence: None)
  Receive Date: 20090122
  Receipt Date: 20090112
  Transmission Date: 20090719
  Serious: Yes (Other)
  Sender: FDA-Public Use
  Company Number: US-CELGENEUS-163-21880-09010574

PATIENT
  Sex: Male

DRUGS (4)
  1. REVLIMID [Suspect]
     Indication: MULTIPLE MYELOMA
     Route: 048
     Dates: start: 20081218
  2. REVLIMID [Suspect]
     Dosage: 10-20 MG
     Route: 048
     Dates: start: 20060911, end: 20080501
  3. THALOMID [Suspect]
     Indication: MULTIPLE MYELOMA
     Route: 048
     Dates: start: 20081218
  4. THALOMID [Suspect]
     Dosage: 100-200MG
     Route: 048
     Dates: start: 20040816, end: 20050101

REACTIONS (1)
  - UPPER LIMB FRACTURE [None]
